FAERS Safety Report 4929418-5 (Version None)
Quarter: 2006Q1

REPORT INFORMATION
  Report Type: 
  Country: None (occurrence: None)
  Receive Date: 20060301
  Receipt Date: 20051117
  Transmission Date: 20060701
  Serious: Yes (Hospitalization, Other)
  Sender: FDA-Public Use
  Company Number: GB-BRISTOL-MYERS SQUIBB COMPANY-13185095

PATIENT
  Sex: Male

DRUGS (4)
  1. ABILIFY [Suspect]
     Indication: PSYCHOTIC DISORDER
     Dosage: THERAPY INITIATED AT 30 MG DAILY ON 21-SEP-2005
     Route: 048
     Dates: start: 20051031, end: 20051031
  2. ABILIFY [Suspect]
     Indication: HALLUCINATION, AUDITORY
     Dosage: THERAPY INITIATED AT 30 MG DAILY ON 21-SEP-2005
     Route: 048
     Dates: start: 20051031, end: 20051031
  3. ALCOHOL [Concomitant]
     Route: 048
     Dates: start: 20051031, end: 20051031
  4. OLANZAPINE [Concomitant]
     Indication: PSYCHOTIC DISORDER
     Route: 048
     Dates: start: 20050913, end: 20050921

REACTIONS (8)
  - BLOOD CHLORIDE INCREASED [None]
  - BLOOD SODIUM INCREASED [None]
  - C-REACTIVE PROTEIN INCREASED [None]
  - DIARRHOEA [None]
  - NEUTROPHIL COUNT INCREASED [None]
  - OVERDOSE [None]
  - SOMNOLENCE [None]
  - SUICIDE ATTEMPT [None]
